FAERS Safety Report 5683053-2 (Version None)
Quarter: 2008Q1

REPORT INFORMATION
  Report Type: 
  Country: None (occurrence: None)
  Receive Date: 20080327
  Receipt Date: 20080321
  Transmission Date: 20080703
  Serious: No
  Sender: FDA-Public Use
  Company Number: US-BAXTER-2008BH002615

PATIENT
  Age: 35 Year
  Sex: Female
  Weight: 72 kg

DRUGS (11)
  1. HEPARIN SODIUM [Suspect]
     Indication: CYSTITIS INTERSTITIAL
     Dosage: DOSE UNIT:UNKNOWN
     Route: 043
     Dates: start: 20030101, end: 20060101
  2. HEPARIN SODIUM [Suspect]
     Dosage: DOSE UNIT:UNKNOWN
     Route: 043
     Dates: start: 20060101, end: 20060101
  3. HEPARIN SODIUM [Suspect]
     Dosage: DOSE UNIT:UNKNOWN
     Route: 043
     Dates: start: 20080221, end: 20080221
  4. MARCAINE [Concomitant]
     Indication: CYSTITIS INTERSTITIAL
     Dosage: DOSE UNIT:UNKNOWN
     Route: 043
     Dates: start: 20030101
  5. SOLU-CORTEF [Concomitant]
     Indication: CYSTITIS INTERSTITIAL
     Dosage: DOSE UNIT:UNKNOWN
     Route: 043
     Dates: start: 20030101
  6. SODIUM BICARBONATE [Concomitant]
     Indication: CYSTITIS INTERSTITIAL
     Dosage: DOSE UNIT:UNKNOWN
     Route: 043
     Dates: start: 20030101
  7. HYDROXYZINE [Concomitant]
     Indication: DRUG USE FOR UNKNOWN INDICATION
     Route: 048
  8. ELMIRON [Concomitant]
     Indication: CYSTITIS INTERSTITIAL
     Dosage: DOSE UNIT:UNKNOWN
     Route: 048
  9. INDERAL [Concomitant]
     Indication: MITRAL VALVE PROLAPSE
     Route: 048
  10. RELPAX [Concomitant]
     Indication: MIGRAINE
     Route: 048
  11. KLONOPIN [Concomitant]
     Indication: DRUG USE FOR UNKNOWN INDICATION
     Dosage: DOSE UNIT:UNKNOWN
     Route: 048

REACTIONS (6)
  - APHASIA [None]
  - DIZZINESS [None]
  - HYPERSENSITIVITY [None]
  - HYPOTENSION [None]
  - PHARYNGEAL OEDEMA [None]
  - SWOLLEN TONGUE [None]
